FAERS Safety Report 17315477 (Version 2)
Quarter: 2020Q1

REPORT INFORMATION
  Report Type: Report from Study
  Country: AU (occurrence: AU)
  Receive Date: 20200124
  Receipt Date: 20200207
  Transmission Date: 20200409
  Serious: Yes (Hospitalization)
  Sender: FDA-Public Use
  Company Number: AU-EMD SERONO-9131373

PATIENT
  Age: 40 Year
  Sex: Female

DRUGS (10)
  1. MAVENCLAD [Suspect]
     Active Substance: CLADRIBINE
     Dosage: YEAR ONE WEEK TWO THERAPY: THE PATIENT ONLY TOOK DAY ONE, TWO AND THREE.
     Route: 048
     Dates: start: 20191222
  2. BREO ELLIPTA [Concomitant]
     Active Substance: FLUTICASONE FUROATE\VILANTEROL TRIFENATATE
     Indication: PRODUCT USED FOR UNKNOWN INDICATION
     Dosage: 200/25 (UNSPECIFIED UNITS): INHALER
  3. OMEPRAZOLE. [Concomitant]
     Active Substance: OMEPRAZOLE
     Indication: PRODUCT USED FOR UNKNOWN INDICATION
     Route: 048
  4. TOPIRAMATE. [Concomitant]
     Active Substance: TOPIRAMATE
     Route: 048
  5. BOTOX [Concomitant]
     Active Substance: ONABOTULINUMTOXINA
     Indication: MIGRAINE
  6. OXYNORM [Concomitant]
     Active Substance: OXYCODONE HYDROCHLORIDE
     Indication: PRODUCT USED FOR UNKNOWN INDICATION
     Route: 048
  7. MAVENCLAD [Suspect]
     Active Substance: CLADRIBINE
     Indication: RELAPSING-REMITTING MULTIPLE SCLEROSIS
     Dosage: YEAR ONE WEEK ONE THERAPY
     Route: 048
     Dates: start: 20191115, end: 20191119
  8. TOPIRAMATE. [Concomitant]
     Active Substance: TOPIRAMATE
     Indication: PRODUCT USED FOR UNKNOWN INDICATION
     Route: 048
  9. VENTOLIN [Concomitant]
     Active Substance: ALBUTEROL SULFATE
     Indication: PRODUCT USED FOR UNKNOWN INDICATION
     Route: 048
  10. TARGIN [Concomitant]
     Active Substance: NALOXONE HYDROCHLORIDE\OXYCODONE HYDROCHLORIDE
     Indication: PRODUCT USED FOR UNKNOWN INDICATION
     Dosage: 40/20 (UNSPECIFIED UNITS)
     Route: 048

REACTIONS (16)
  - Uhthoff^s phenomenon [Recovered/Resolved]
  - Facial paralysis [Unknown]
  - Alopecia [Unknown]
  - Respiratory tract infection [Unknown]
  - Headache [Not Recovered/Not Resolved]
  - Lower respiratory tract infection [Unknown]
  - Hypophagia [Unknown]
  - Nausea [Unknown]
  - Photosensitivity reaction [Unknown]
  - Fatigue [Unknown]
  - Herpes zoster [Not Recovered/Not Resolved]
  - Asthenia [Unknown]
  - Discomfort [Unknown]
  - Eye disorder [Unknown]
  - Migraine [Unknown]
  - Pain in jaw [Unknown]

NARRATIVE: CASE EVENT DATE: 201911
